FAERS Safety Report 18955763 (Version 1)
Quarter: 2021Q1

REPORT INFORMATION
  Report Type: Report from Study
  Country: US (occurrence: US)
  Receive Date: 20210302
  Receipt Date: 20210302
  Transmission Date: 20210420
  Serious: Yes (Other)
  Sender: FDA-Public Use
  Company Number: US-BIOGEN-2021BI00981872

PATIENT
  Age: 65 Year
  Sex: Female

DRUGS (2)
  1. TYSABRI [Suspect]
     Active Substance: NATALIZUMAB
     Indication: MULTIPLE SCLEROSIS
     Route: 042
     Dates: start: 20191118
  2. LEXAPRO [Concomitant]
     Active Substance: ESCITALOPRAM OXALATE
     Indication: ANXIETY
     Route: 065

REACTIONS (20)
  - Muscular weakness [Unknown]
  - Vertigo [Recovered/Resolved]
  - Balance disorder [Not Recovered/Not Resolved]
  - Muscle spasms [Unknown]
  - Photophobia [Unknown]
  - Anxiety [Unknown]
  - Fatigue [Unknown]
  - Seizure [Unknown]
  - Gait inability [Unknown]
  - Dizziness [Unknown]
  - Urinary tract infection [Unknown]
  - Cognitive disorder [Unknown]
  - Paraesthesia [Unknown]
  - Discomfort [Unknown]
  - Nausea [Unknown]
  - Inappropriate schedule of product administration [Unknown]
  - Herpes virus infection [Unknown]
  - Weight decreased [Unknown]
  - Feeling abnormal [Recovered/Resolved]
  - Hyperacusis [Unknown]

NARRATIVE: CASE EVENT DATE: 202009
